FAERS Safety Report 8473032-4 (Version None)
Quarter: 2012Q2

REPORT INFORMATION
  Report Type: 
  Country: None (occurrence: None)
  Receive Date: 20120627
  Receipt Date: 20120618
  Transmission Date: 20120825
  Serious: Yes (Other)
  Sender: FDA-Public Use
  Company Number: JP-JNJFOC-20120401908

PATIENT
  Sex: Female
  Weight: 51 kg

DRUGS (10)
  1. BETAMETHASONE [Concomitant]
     Indication: COLITIS ULCERATIVE
     Route: 054
     Dates: start: 20120214
  2. IMURAN [Suspect]
     Indication: COLITIS ULCERATIVE
     Route: 048
     Dates: start: 20120313
  3. CANDESARTAN CILEXETIL [Concomitant]
     Indication: HYPERTENSION
     Route: 048
  4. REMICADE [Suspect]
     Dosage: 4TH DOSE; 5MG/KG
     Route: 042
     Dates: start: 20120214
  5. CEFAZOLIN SODIUM [Concomitant]
     Indication: COLITIS ULCERATIVE
     Route: 048
  6. RABEPRAZOLE SODIUM [Concomitant]
     Indication: GASTROOESOPHAGEAL REFLUX DISEASE
     Route: 048
  7. REMICADE [Suspect]
     Indication: COLITIS ULCERATIVE
     Dosage: 5MG/KG
     Route: 042
     Dates: start: 20111104
  8. PREDNISOLONE [Concomitant]
     Indication: COLITIS ULCERATIVE
     Route: 048
     Dates: start: 20100110
  9. ASACOL [Concomitant]
     Indication: COLITIS ULCERATIVE
     Route: 048
     Dates: start: 20110118
  10. LIVALO [Concomitant]
     Indication: HYPERLIPIDAEMIA
     Route: 048
     Dates: start: 20100621

REACTIONS (2)
  - TENSION HEADACHE [None]
  - LEUKOENCEPHALOPATHY [None]
